FAERS Safety Report 16588804 (Version 1)
Quarter: 2019Q3

REPORT INFORMATION
  Report Type: Spontaneous
  Country: ES (occurrence: ES)
  Receive Date: 20190718
  Receipt Date: 20190718
  Transmission Date: 20191004
  Serious: Yes (Hospitalization, Disabling, Other)
  Sender: FDA-Public Use
  Company Number: ES-009507513-01099148

PATIENT
  Age: 75 Year
  Sex: Male

DRUGS (3)
  1. DILTIAZEM HYDROCHLORIDE. [Interacting]
     Active Substance: DILTIAZEM HYDROCHLORIDE
     Indication: HYPERTENSION
     Dosage: 240 MG, QD
     Route: 048
     Dates: start: 199905, end: 200002
  2. ZOCOR [Suspect]
     Active Substance: SIMVASTATIN
     Indication: HYPERCHOLESTEROLAEMIA
     Dosage: 40 MG, QD
     Route: 048
     Dates: start: 1994, end: 199911
  3. ZOCOR [Interacting]
     Active Substance: SIMVASTATIN
     Dosage: 80 MG, QD
     Route: 048
     Dates: start: 199911, end: 200002

REACTIONS (3)
  - Acute kidney injury [Not Recovered/Not Resolved]
  - Drug interaction [Unknown]
  - Rhabdomyolysis [Recovered/Resolved]

NARRATIVE: CASE EVENT DATE: 199905
